FAERS Safety Report 12920232 (Version 1)
Quarter: 2016Q4

REPORT INFORMATION
  Report Type: Spontaneous
  Country: US (occurrence: US)
  Receive Date: 20161105
  Receipt Date: 20161105
  Transmission Date: 20170207
  Serious: No
  Sender: FDA-Public Use
  Company Number: None

PATIENT
  Age: 57 Year
  Sex: Female
  Weight: 58.5 kg

DRUGS (3)
  1. VAGIFEM [Suspect]
     Active Substance: ESTRADIOL
     Indication: ATROPHIC VULVOVAGINITIS
     Dosage: ?          OTHER STRENGTH:MCG;QUANTITY:1 SUPPOSITORY(IES);OTHER FREQUENCY:BI WEEKLY;?
     Route: 067
     Dates: start: 20160711, end: 20161105
  2. MAGNESIUM [Concomitant]
     Active Substance: MAGNESIUM
  3. CALTRATE [Concomitant]
     Active Substance: CALCIUM CARBONATE

REACTIONS (1)
  - Pain in jaw [None]

NARRATIVE: CASE EVENT DATE: 20161105
